FAERS Safety Report 14056455 (Version 1)
Quarter: 2017Q4

REPORT INFORMATION
  Report Type: Spontaneous
  Country: US (occurrence: US)
  Receive Date: 20171006
  Receipt Date: 20171006
  Transmission Date: 20180321
  Serious: No
  Sender: FDA-Public Use
  Company Number: US-BAYER-2017-190932

PATIENT
  Sex: Female

DRUGS (2)
  1. MIRALAX [Suspect]
     Active Substance: POLYETHYLENE GLYCOL 3350
     Dosage: UNK
     Route: 065
  2. MIRALAX [Suspect]
     Active Substance: POLYETHYLENE GLYCOL 3350
     Dosage: UNK
     Route: 065

REACTIONS (8)
  - Product use issue [Unknown]
  - Diarrhoea [Unknown]
  - Change of bowel habit [Unknown]
  - Frequent bowel movements [Unknown]
  - Muscle spasms [Unknown]
  - Inappropriate prescribing [Unknown]
  - Unevaluable event [Unknown]
  - Wrong technique in product usage process [Unknown]
